FAERS Safety Report 18338284 (Version 6)
Quarter: 2023Q2

REPORT INFORMATION
  Report Type: Report from Study
  Country: US (occurrence: US)
  Receive Date: 20201002
  Receipt Date: 20230526
  Transmission Date: 20230722
  Serious: Yes (Other)
  Sender: FDA-Public Use
  Company Number: NVSC2020US264571

PATIENT
  Age: 51 Year
  Sex: Male

DRUGS (4)
  1. MAYZENT [Suspect]
     Active Substance: SIPONIMOD
     Indication: Multiple sclerosis
     Dosage: 2 MG, QD
     Route: 048
     Dates: start: 20200925, end: 20200925
  2. MAYZENT [Suspect]
     Active Substance: SIPONIMOD
     Dosage: 1 MG, QD
     Route: 048
     Dates: start: 20200929, end: 20200929
  3. MAYZENT [Suspect]
     Active Substance: SIPONIMOD
     Dosage: 2 MG, QD
     Route: 048
     Dates: start: 202009
  4. MAYZENT [Suspect]
     Active Substance: SIPONIMOD
     Dosage: 0.25 MG
     Route: 065

REACTIONS (5)
  - Bradycardia [Recovered/Resolved]
  - Multiple sclerosis [Unknown]
  - Blood pressure increased [Unknown]
  - Wrong technique in product usage process [Not Recovered/Not Resolved]
  - Incorrect dose administered [Not Recovered/Not Resolved]

NARRATIVE: CASE EVENT DATE: 20200901
